FAERS Safety Report 5456229-7 (Version None)
Quarter: 2007Q3

REPORT INFORMATION
  Report Type: 
  Country: None (occurrence: None)
  Receive Date: 20070918
  Receipt Date: 20070228
  Transmission Date: 20080115
  Serious: Yes (Other)
  Sender: FDA-Public Use
  Company Number: US-ASTRAZENECA-2006UW23309

PATIENT
  Sex: Female
  Weight: 130.5 kg

DRUGS (2)
  1. SEROQUEL [Suspect]
     Indication: DEPRESSION
     Dosage: 100MG - 300 MG
     Route: 048
     Dates: start: 19980114, end: 20061011
  2. ABILIFY [Suspect]

REACTIONS (4)
  - DIABETIC KETOACIDOSIS [None]
  - PANCREATITIS [None]
  - TARDIVE DYSKINESIA [None]
  - TYPE 2 DIABETES MELLITUS [None]
